FAERS Safety Report 14439866 (Version 1)
Quarter: 2018Q1

REPORT INFORMATION
  Report Type: Spontaneous
  Country: US (occurrence: US)
  Receive Date: 20180125
  Receipt Date: 20180125
  Transmission Date: 20180509
  Serious: No
  Sender: FDA-Public Use
  Company Number: US-ACORDA-ACO_133497_2017

PATIENT
  Age: 36 Year
  Sex: Male
  Weight: 133.79 kg

DRUGS (10)
  1. TIZANIDINE. [Suspect]
     Active Substance: TIZANIDINE
     Indication: MUSCLE SPASMS
     Dosage: 4 MG, ONE TO TWO, EVERY 8 HOURS
     Route: 048
     Dates: start: 201601
  2. POTASSIUM CHLORIDE. [Concomitant]
     Active Substance: POTASSIUM CHLORIDE
     Indication: OEDEMA PERIPHERAL
     Dosage: 10 MEQ, BID
     Route: 048
  3. FUROSEMIDE. [Concomitant]
     Active Substance: FUROSEMIDE
     Indication: OEDEMA PERIPHERAL
     Dosage: 20 MG, BID
     Route: 048
  4. LYRICA [Suspect]
     Active Substance: PREGABALIN
     Indication: NEUROPATHY PERIPHERAL
     Dosage: 50 MG (2 CAPSULES), TID
     Route: 048
     Dates: start: 201611, end: 20161216
  5. LYRICA [Suspect]
     Active Substance: PREGABALIN
     Dosage: UNK
     Route: 065
     Dates: start: 20170116
  6. TIZANIDINE. [Suspect]
     Active Substance: TIZANIDINE
     Indication: NEUROPATHY PERIPHERAL
     Dosage: 4 MG, EVERY 2 HOURS
     Route: 048
  7. TIZANIDINE. [Suspect]
     Active Substance: TIZANIDINE
     Indication: PAIN IN EXTREMITY
  8. LYRICA [Suspect]
     Active Substance: PREGABALIN
     Dosage: 100 MG, TID
     Route: 048
  9. TYLENOL [Concomitant]
     Active Substance: ACETAMINOPHEN
     Indication: PAIN
     Dosage: 2 TABLETS AT NIGHT AND 2 TABLETS IN THE MORNING
     Route: 048
  10. METHADONE HCL [Suspect]
     Active Substance: METHADONE HYDROCHLORIDE
     Indication: PAIN IN EXTREMITY
     Dosage: UNK
     Route: 065

REACTIONS (5)
  - Haematochezia [Not Recovered/Not Resolved]
  - Pain [Recovered/Resolved]
  - Drug withdrawal syndrome [Recovered/Resolved]
  - Arthritis [Unknown]
  - Product use in unapproved indication [Unknown]

NARRATIVE: CASE EVENT DATE: 19950101
